FAERS Safety Report 24020523 (Version 1)
Quarter: 2024Q2

REPORT INFORMATION
  Report Type: Spontaneous
  Country: US (occurrence: None)
  Receive Date: 20240627
  Receipt Date: 20240627
  Transmission Date: 20240716
  Serious: Yes (Death)
  Sender: FDA-Public Use
  Company Number: None

PATIENT
  Age: 59 Year
  Sex: Male
  Weight: 112.5 kg

DRUGS (8)
  1. MEXILETINE [Suspect]
     Active Substance: MEXILETINE
     Indication: Ventricular extrasystoles
     Dosage: FREQUENCY : TWICE A DAY;?
     Dates: start: 20240426
  2. LIPITOR [Concomitant]
     Active Substance: ATORVASTATIN CALCIUM
  3. besertin/avapro [Concomitant]
  4. MELOXICAM [Concomitant]
     Active Substance: MELOXICAM
  5. Metopral [Concomitant]
  6. Mexilitene [Concomitant]
  7. CEPHALEXIN [Concomitant]
     Active Substance: CEPHALEXIN
  8. ASPIRIN [Concomitant]
     Active Substance: ASPIRIN

REACTIONS (1)
  - Cardiac arrest [None]

NARRATIVE: CASE EVENT DATE: 20240511
